FAERS Safety Report 17235995 (Version 1)
Quarter: 2020Q1

REPORT INFORMATION
  Report Type: Spontaneous
  Country: US (occurrence: US)
  Receive Date: 20200106
  Receipt Date: 20200106
  Transmission Date: 20200409
  Serious: No
  Sender: FDA-Public Use
  Company Number: US-GLENMARK PHARMACEUTICALS-2019GMK044280

PATIENT

DRUGS (1)
  1. MUPIROCIN OINTMENT USP, 2% [Suspect]
     Active Substance: MUPIROCIN
     Indication: NASAL DRYNESS
     Dosage: UNK; START DATE: 2 OR 3 YEARS AGO (UNSPECIFIED)
     Route: 045

REACTIONS (3)
  - Drug effective for unapproved indication [Unknown]
  - Incorrect route of product administration [Unknown]
  - Expired product administered [Unknown]
